FAERS Safety Report 25310287 (Version 1)
Quarter: 2025Q2

REPORT INFORMATION
  Report Type: Spontaneous
  Country: US (occurrence: US)
  Receive Date: 20250514
  Receipt Date: 20250514
  Transmission Date: 20250716
  Serious: No
  Sender: AMGEN
  Company Number: US-AMGEN-USASP2025090677

PATIENT
  Age: 68 Year
  Sex: Female

DRUGS (1)
  1. PROLIA [Suspect]
     Active Substance: DENOSUMAB
     Indication: Osteoporosis
     Dosage: 60 MILLIGRAM, Q6MO
     Route: 065
     Dates: start: 202409

REACTIONS (11)
  - Back pain [Unknown]
  - Spinal pain [Unknown]
  - Arthralgia [Unknown]
  - Pain in extremity [Unknown]
  - Groin pain [Unknown]
  - Sacral pain [Unknown]
  - Limb discomfort [Unknown]
  - Sinusitis [Unknown]
  - Bronchitis [Unknown]
  - Dysphagia [Unknown]
  - Epistaxis [Unknown]

NARRATIVE: CASE EVENT DATE: 20250326
